FAERS Safety Report 18085067 (Version 2)
Quarter: 2021Q2

REPORT INFORMATION
  Report Type: Report from Study
  Country: US (occurrence: US)
  Receive Date: 20200729
  Receipt Date: 20210520
  Transmission Date: 20210717
  Serious: Yes (Death, Other)
  Sender: FDA-Public Use
  Company Number: NVSC2020US208552

PATIENT
  Sex: Female

DRUGS (1)
  1. PIQRAY [Suspect]
     Active Substance: ALPELISIB
     Indication: PRODUCT USED FOR UNKNOWN INDICATION
     Dosage: UNK
     Route: 048

REACTIONS (9)
  - Renal impairment [Unknown]
  - Pharyngeal ulceration [Unknown]
  - Feeding disorder [Unknown]
  - Death [Fatal]
  - Body temperature increased [Unknown]
  - Stomatitis [Unknown]
  - Skin exfoliation [Unknown]
  - Infection [Unknown]
  - Metabolic disorder [Unknown]
